FAERS Safety Report 15083410 (Version 2)
Quarter: 2018Q3

REPORT INFORMATION
  Report Type: Spontaneous
  Country: DE (occurrence: DE)
  Receive Date: 20180628
  Receipt Date: 20180709
  Transmission Date: 20181010
  Serious: Yes (Life-Threatening, Other)
  Sender: FDA-Public Use
  Company Number: DE-MYLANLABS-2018M1046275

PATIENT
  Sex: Female

DRUGS (4)
  1. IBUPROFEN. [Concomitant]
     Active Substance: IBUPROFEN
     Indication: ANALGESIC THERAPY
     Dosage: 600 MG
     Route: 065
  2. LOPERAMIDE [Suspect]
     Active Substance: LOPERAMIDE
     Indication: GASTROENTERITIS
     Dosage: 2 TABLETS OF 2MG LOPERAMIDE, FOLLOWED BY ANOTHER DOSE OF 2MG (TOTAL 6MG)
     Route: 065
  3. QUININE [Interacting]
     Active Substance: QUININE
     Dosage: CONSUMED LARGE QUANTITY OF BEVERAGES CONTAINING QUININE (QUININE CONTENT OF 68 MG/1000ML). APPROX
     Route: 048
  4. QUININE [Interacting]
     Active Substance: QUININE
     Indication: PRODUCT USED FOR UNKNOWN INDICATION
     Dosage: CONSUMED LARGE QUANTITY OF BEVERAGES CONTAINING QUININE
     Route: 048

REACTIONS (11)
  - Accidental poisoning [Unknown]
  - Cardiac arrest [Unknown]
  - Brain death [Not Recovered/Not Resolved]
  - Coma [Unknown]
  - Aspiration [Unknown]
  - Toxicity to various agents [Unknown]
  - Brain injury [Unknown]
  - Disturbance in attention [Unknown]
  - Accidental exposure to product [Unknown]
  - Drug interaction [Unknown]
  - Sedation [Unknown]
